FAERS Safety Report 6130328-9 (Version None)
Quarter: 2009Q1

REPORT INFORMATION
  Report Type: 
  Country: None (occurrence: None)
  Receive Date: 20090324
  Receipt Date: 20090316
  Transmission Date: 20090719
  Serious: Yes (Hospitalization)
  Sender: FDA-Public Use
  Company Number: KR-ABBOTT-09P-090-0562372-00

PATIENT
  Age: 35 Year
  Sex: Female
  Weight: 42 kg

DRUGS (8)
  1. HUMIRA [Suspect]
     Indication: ANKYLOSING SPONDYLITIS
     Route: 058
     Dates: start: 20081016
  2. HUMIRA [Suspect]
     Route: 058
  3. PREDNISOLONE [Concomitant]
     Indication: ANTIINFLAMMATORY THERAPY
     Route: 048
     Dates: start: 20081013
  4. MORNIFLUMATE [Concomitant]
     Indication: PAIN MANAGEMENT
     Route: 048
     Dates: start: 20080721
  5. REBAMIPIDE [Concomitant]
     Indication: PROPHYLAXIS AGAINST GASTROINTESTINAL ULCER
     Route: 048
     Dates: start: 20080922
  6. MESALAZINE [Concomitant]
     Indication: CROHN'S DISEASE
     Route: 048
     Dates: start: 20080922
  7. METHOTREXATE [Concomitant]
     Indication: PROPHYLAXIS
     Dosage: 7.5 MG QW
     Route: 048
     Dates: start: 20081027
  8. FOLIC ACID [Concomitant]
     Indication: PROPHYLAXIS
     Route: 048
     Dates: start: 20081027

REACTIONS (1)
  - PERITONITIS [None]
